FAERS Safety Report 11229860 (Version 2)
Quarter: 2015Q4

REPORT INFORMATION
  Report Type: Spontaneous
  Country: US (occurrence: US)
  Receive Date: 20150630
  Receipt Date: 20151105
  Transmission Date: 20160304
  Serious: Yes (Hospitalization, Other)
  Sender: FDA-Public Use
  Company Number: US-JNJFOC-20150619324

PATIENT
  Age: 33 Year
  Sex: Female
  Weight: 76.2 kg

DRUGS (6)
  1. COCAINE [Concomitant]
     Active Substance: COCAINE
     Indication: PRODUCT USED FOR UNKNOWN INDICATION
     Route: 065
  2. BENZODIAZEPINE NOS [Concomitant]
     Active Substance: BENZODIAZEPINE
     Indication: PRODUCT USED FOR UNKNOWN INDICATION
     Route: 065
  3. SOMA [Concomitant]
     Active Substance: CARISOPRODOL
     Indication: PRODUCT USED FOR UNKNOWN INDICATION
     Route: 065
     Dates: start: 200910
  4. OXYCODONE [Concomitant]
     Active Substance: OXYCODONE
     Indication: BACK PAIN
     Route: 065
  5. XANAX [Concomitant]
     Active Substance: ALPRAZOLAM
     Indication: ANXIETY
     Route: 065
     Dates: start: 20090305
  6. TYLENOL EXTRA STRENGTH [Suspect]
     Active Substance: ACETAMINOPHEN
     Indication: FRACTURE PAIN
     Dosage: 2 CAPLETS EVERY 6 TO 8 HOURS, IN TOTAL 3000 TO 4000 MG/DAY
     Route: 048
     Dates: start: 20110624, end: 20110626

REACTIONS (16)
  - Overdose [Recovering/Resolving]
  - Left atrial dilatation [None]
  - Gastrooesophageal reflux disease [None]
  - Hepatorenal syndrome [Recovering/Resolving]
  - Nausea [None]
  - Pneumonia [None]
  - Toxic encephalopathy [None]
  - Drug screen positive [None]
  - Acute kidney injury [Recovering/Resolving]
  - Diarrhoea [None]
  - Supraventricular tachycardia [None]
  - Pancytopenia [None]
  - Acute hepatic failure [Recovering/Resolving]
  - Vomiting [None]
  - Hypertension [None]
  - Sinus bradycardia [None]

NARRATIVE: CASE EVENT DATE: 201106
